FAERS Safety Report 9019036 (Version 3)
Quarter: 2013Q1

REPORT INFORMATION
  Report Type: Spontaneous
  Country: CN (occurrence: CN)
  Receive Date: 20130118
  Receipt Date: 20130307
  Transmission Date: 20140127
  Serious: Yes (Life-Threatening, Hospitalization, Other)
  Sender: FDA-Public Use
  Company Number: CN-ALLERGAN-1300665US

PATIENT
  Age: 40 Year
  Sex: Female

DRUGS (2)
  1. BOTOX? [Suspect]
     Indication: SKIN WRINKLING
     Dosage: 20 UNITS, SINGLE
  2. BOTOX? [Suspect]
     Indication: SKIN WRINKLING

REACTIONS (5)
  - Foaming at mouth [Recovering/Resolving]
  - Respiratory failure [Recovering/Resolving]
  - Loss of consciousness [Recovering/Resolving]
  - Toxicity to various agents [Recovering/Resolving]
  - Mania [Recovered/Resolved]
